FAERS Safety Report 5399473-X (Version None)
Quarter: 2007Q3

REPORT INFORMATION
  Report Type: 
  Country: None (occurrence: None)
  Receive Date: 20070727
  Receipt Date: 20070723
  Transmission Date: 20080115
  Serious: Yes (Life-Threatening)
  Sender: FDA-Public Use
  Company Number: IT-SHR-IT-2007-027217

PATIENT
  Age: 63 Year
  Sex: Male

DRUGS (1)
  1. ULTRAVIST 370 [Suspect]
     Dosage: 200 ML, 1 DOSE
     Route: 042
     Dates: start: 20070612, end: 20070612

REACTIONS (1)
  - PEMPHIGOID [None]
